FAERS Safety Report 13481350 (Version 2)
Quarter: 2017Q3

REPORT INFORMATION
  Report Type: Report from Study
  Country: US (occurrence: US)
  Receive Date: 20170424
  Receipt Date: 20170728
  Transmission Date: 20171127
  Serious: No
  Sender: FDA-Public Use
  Company Number: US-AMGEN-USASL2017047114

PATIENT
  Age: 40 Year
  Sex: Female

DRUGS (4)
  1. AUGMENTIN [Concomitant]
     Active Substance: AMOXICILLIN\CLAVULANATE POTASSIUM
     Indication: SINUSITIS
     Dosage: UNK
  2. REPATHA [Suspect]
     Active Substance: EVOLOCUMAB
     Dosage: 420 MG, QMO
     Route: 065
  3. MEDROL [Concomitant]
     Active Substance: METHYLPREDNISOLONE
     Indication: SINUSITIS
     Dosage: UNK
  4. REPATHA [Suspect]
     Active Substance: EVOLOCUMAB
     Indication: TYPE IIA HYPERLIPIDAEMIA
     Dosage: 140 MG, Q2WK
     Route: 065
     Dates: start: 20170117

REACTIONS (8)
  - Sinus headache [Unknown]
  - White blood cell count increased [Unknown]
  - Feeling abnormal [Unknown]
  - Injection site erythema [Unknown]
  - Drug ineffective [Unknown]
  - Injection site swelling [Unknown]
  - Therapeutic response unexpected [Unknown]
  - Injection site pain [Unknown]

NARRATIVE: CASE EVENT DATE: 201702
